FAERS Safety Report 6346734-3 (Version None)
Quarter: 2009Q3

REPORT INFORMATION
  Report Type: 
  Country: None (occurrence: None)
  Receive Date: 20090904
  Receipt Date: 20090826
  Transmission Date: 20100115
  Serious: Yes (Hospitalization)
  Sender: FDA-Public Use
  Company Number: SPV1-2009-01502

PATIENT
  Age: 46 Year
  Sex: Male

DRUGS (24)
  1. FOSRENOL [Suspect]
     Indication: HYPERPHOSPHATAEMIA
     Dosage: ORAL
     Route: 048
     Dates: start: 20090603, end: 20090714
  2. PHOSBLOCK (SEVELAMER HYDROCHLORIDE) [Concomitant]
  3. LASIX [Concomitant]
  4. ALLOPURINOL [Concomitant]
  5. DEPAS (ETIZOLAM) [Concomitant]
  6. PURSENNID /00142207/ (SENNA ALEXANDRINA LEAF) [Concomitant]
  7. ALOSENN /00476901/ (ACHILLEA MILEFOLIUM, RUBIA TINCTORUM ROOT TINCTURE [Concomitant]
  8. ZANTAC [Concomitant]
  9. ZYRTEC [Concomitant]
  10. SELBEX (TEPRENONE) [Concomitant]
  11. NEUROTROPIN /0049301/ (SMALLPOX VACCINE) [Concomitant]
  12. LENDORMIN DAINIPPO (BROTIZOLAM) [Concomitant]
  13. ATARAX [Concomitant]
  14. LAXOBERON (SODIUM PICOSULFATE) [Concomitant]
  15. SORBITOL (SORBITOL) [Concomitant]
  16. REGPARA [Concomitant]
  17. VASOLAN /00014302/ (VERAPAMIL HYDROCHLORIDE) [Concomitant]
  18. AMIODARONE HCL [Concomitant]
  19. DIGOXIN [Concomitant]
  20. PLAVIX [Concomitant]
  21. CALTAN (CALCIUM CARBONATE) [Concomitant]
  22. PLETAL [Concomitant]
  23. RISUMIC (AMEZINIUM METILSULFATE) [Concomitant]
  24. DOPS (DROXIDOPA) [Concomitant]

REACTIONS (1)
  - SUBILEUS [None]
